FAERS Safety Report 6966022-1 (Version None)
Quarter: 2010Q3

REPORT INFORMATION
  Report Type: 
  Country: None (occurrence: None)
  Receive Date: 20100823
  Receipt Date: 20100603
  Transmission Date: 20110219
  Serious: Yes (Hospitalization)
  Sender: FDA-Public Use
  Company Number: 013822

PATIENT
  Sex: Female

DRUGS (1)
  1. CIMZIA [Suspect]
     Dosage: (START DATE: FALL OF LAST YEAR SUBCUTANEOUS)
     Route: 058
     Dates: start: 20090101

REACTIONS (1)
  - ABDOMINAL PAIN [None]
